FAERS Safety Report 6480804-4 (Version None)
Quarter: 2009Q4

REPORT INFORMATION
  Report Type: 
  Country: None (occurrence: None)
  Receive Date: 20091203
  Receipt Date: 20091118
  Transmission Date: 20100525
  Serious: Yes (Other)
  Sender: FDA-Public Use
  Company Number: AUR-APL-2009-01217

PATIENT
  Age: 59 Year
  Sex: Male
  Weight: 99.77 kg

DRUGS (12)
  1. METFORMIN HCL [Suspect]
     Indication: DIABETES MELLITUS
     Dosage: 2000MG - DAILY -
     Dates: start: 20081001
  2. LYRICA [Suspect]
     Indication: DIABETIC NEUROPATHY
     Dosage: ORAL
     Route: 048
     Dates: start: 20081001, end: 20091023
  3. FISH OIL [Concomitant]
  4. OLIVE OIL [Concomitant]
  5. ULTRA THISTLE [Concomitant]
  6. LIVER ESSENTIALS CAPSULES [Concomitant]
  7. OLIVE LEAF EXTRACT 750MG CAPSULES [Concomitant]
  8. NATURAL VITAMINS [Concomitant]
  9. MINERAL TAB [Concomitant]
  10. MULTI-VITAMINS [Concomitant]
  11. MULTIMINERALS [Concomitant]
  12. GLIMEPIRIDE [Concomitant]

REACTIONS (5)
  - BURNING SENSATION [None]
  - DRUG INEFFECTIVE [None]
  - OEDEMA PERIPHERAL [None]
  - PAIN [None]
  - SUICIDAL IDEATION [None]
